FAERS Safety Report 5778790-5 (Version None)
Quarter: 2008Q2

REPORT INFORMATION
  Report Type: 
  Country: None (occurrence: None)
  Receive Date: 20080619
  Receipt Date: 20080610
  Transmission Date: 20081010
  Serious: Yes (Other)
  Sender: FDA-Public Use
  Company Number: PHHY2008BR10790

PATIENT

DRUGS (7)
  1. DESFERAL [Suspect]
     Indication: SERUM FERRITIN INCREASED
     Dosage: 1 DF, UNK
     Route: 058
     Dates: start: 20080101
  2. DESFERAL [Suspect]
     Indication: THALASSAEMIA BETA
     Dosage: 2 DF, ONCE/SINGLE
     Route: 058
     Dates: start: 20080609
  3. DESFERAL [Suspect]
     Dosage: 3 DF/DAY
     Route: 058
  4. FOLIC ACID [Concomitant]
     Dosage: UNK
  5. PREDNISONE TAB [Concomitant]
     Indication: PAIN
  6. PLASIL [Concomitant]
     Indication: NAUSEA
     Dosage: UNK
     Dates: start: 20080501
  7. ORAL ANTIDIABETICS [Concomitant]

REACTIONS (10)
  - ANOREXIA [None]
  - INJECTION SITE PAIN [None]
  - INJECTION SITE SWELLING [None]
  - MALAISE [None]
  - MOBILITY DECREASED [None]
  - NAUSEA [None]
  - PAIN [None]
  - SERUM FERRITIN INCREASED [None]
  - SPLENOMEGALY [None]
  - WEIGHT DECREASED [None]
